FAERS Safety Report 8226409-6 (Version None)
Quarter: 2012Q1

REPORT INFORMATION
  Report Type: 
  Country: None (occurrence: None)
  Receive Date: 20120321
  Receipt Date: 20120312
  Transmission Date: 20120608
  Serious: Yes (Other)
  Sender: FDA-Public Use
  Company Number: ES-ASTRAZENECA-2012SE17371

PATIENT
  Age: 53 Year
  Sex: Male

DRUGS (5)
  1. CRESTOR [Suspect]
     Route: 048
     Dates: start: 20110610, end: 20111018
  2. ABILIFY [Suspect]
     Route: 048
     Dates: start: 20110304
  3. DEPAKINE CHRONO 500 MG, FILM COATED-TABLETS,100 TABLETS [Concomitant]
     Route: 048
     Dates: start: 20091009
  4. OMEPRAZOL NORMON 20 MG, 28 TABLETS [Concomitant]
     Route: 048
     Dates: start: 20080118
  5. ZYPREXA VELOTAB 5 MG (OLANZAPINE) ORODISPERSIBLE 28 TABLETS [Concomitant]
     Route: 048
     Dates: start: 20081222

REACTIONS (1)
  - MUSCLE RIGIDITY [None]
